FAERS Safety Report 7501116-3 (Version None)
Quarter: 2011Q2

REPORT INFORMATION
  Report Type: 
  Country: None (occurrence: None)
  Receive Date: 20110524
  Receipt Date: 20100714
  Transmission Date: 20111010
  Serious: No
  Sender: FDA-Public Use
  Company Number: US-NOVEN-ALL1-2010-03863

PATIENT
  Sex: Male
  Weight: 40.363 kg

DRUGS (2)
  1. DAYTRANA [Suspect]
     Dosage: 10 MG. PATCH FROM 6:20AM UNTIL NOON MONDAY THROUGH FRIDAY
     Route: 062
     Dates: start: 20100101
  2. DAYTRANA [Suspect]
     Dosage: 10 MG. PATCH DAILY DURING SCHOOL HOURS UP TO 3PM
     Route: 062
     Dates: start: 20100501, end: 20100101

REACTIONS (1)
  - APPLICATION SITE PAIN [None]
